FAERS Safety Report 7721456-2 (Version None)
Quarter: 2011Q3

REPORT INFORMATION
  Report Type: 
  Country: None (occurrence: None)
  Receive Date: 20110831
  Receipt Date: 20110819
  Transmission Date: 20111222
  Serious: Yes (Death, Hospitalization, Other)
  Sender: FDA-Public Use
  Company Number: JP-ROCHE-799473

PATIENT
  Sex: Female
  Weight: 56 kg

DRUGS (16)
  1. EFUDEX [Suspect]
     Route: 040
     Dates: start: 20090101, end: 20090101
  2. EFUDEX [Suspect]
     Dosage: DOSAGE IS UNCERTAIN.
     Route: 040
     Dates: start: 20091101
  3. ISOVORIN [Suspect]
     Indication: COLON CANCER METASTATIC
     Route: 041
     Dates: start: 20090101, end: 20090101
  4. AVASTIN [Suspect]
     Indication: COLON CANCER METASTATIC
     Route: 041
     Dates: start: 20090310, end: 20090101
  5. EFUDEX [Suspect]
     Route: 040
     Dates: start: 20090101, end: 20090101
  6. ISOVORIN [Suspect]
     Dosage: DOSAGE IS UNCERTAIN.
     Route: 041
     Dates: start: 20090101
  7. IRINOTECAN HCL [Concomitant]
     Route: 041
     Dates: start: 20090101, end: 20090101
  8. KYTRIL [Concomitant]
     Route: 042
     Dates: start: 20090128
  9. AVASTIN [Suspect]
     Route: 041
     Dates: start: 20091101, end: 20091208
  10. EFUDEX [Suspect]
     Indication: COLON CANCER METASTATIC
     Route: 040
     Dates: start: 20090128, end: 20090101
  11. EFUDEX [Suspect]
     Route: 040
     Dates: start: 20090128, end: 20090101
  12. OXALIPLATIN [Suspect]
     Indication: COLON CANCER METASTATIC
     Route: 041
     Dates: start: 20090128, end: 20090101
  13. OXALIPLATIN [Suspect]
     Dosage: DOSAGE IS UNCERTAIN.
     Route: 041
     Dates: start: 20091101
  14. AVASTIN [Suspect]
     Route: 041
     Dates: start: 20090101, end: 20090101
  15. EFUDEX [Suspect]
     Dosage: DOSAGE IS UNCERTAIN.
     Route: 040
     Dates: start: 20091101
  16. DECADRON [Concomitant]
     Route: 042
     Dates: start: 20090128

REACTIONS (7)
  - DISEASE PROGRESSION [None]
  - ALTERED STATE OF CONSCIOUSNESS [None]
  - VOMITING [None]
  - DEEP VEIN THROMBOSIS [None]
  - HYPERAMMONAEMIA [None]
  - DECREASED APPETITE [None]
  - DEHYDRATION [None]
